FAERS Safety Report 4985926-2 (Version None)
Quarter: 2006Q2

REPORT INFORMATION
  Report Type: 
  Country: None (occurrence: None)
  Receive Date: 20060428
  Receipt Date: 20060426
  Transmission Date: 20061013
  Serious: Yes (Death, Hospitalization)
  Sender: FDA-Public Use
  Company Number: US-BRISTOL-MYERS SQUIBB COMPANY-13357801

PATIENT
  Age: 73 Year
  Sex: Male
  Weight: 85 kg

DRUGS (8)
  1. PACLITAXEL [Suspect]
     Indication: NON-SMALL CELL LUNG CANCER
     Route: 042
     Dates: start: 20050623, end: 20050803
  2. CARBOPLATIN [Suspect]
     Indication: NON-SMALL CELL LUNG CANCER
     Route: 042
     Dates: start: 20050623, end: 20050803
  3. TYLENOL (CAPLET) [Concomitant]
  4. DULCOLAX [Concomitant]
  5. ASPIRIN [Concomitant]
     Dates: start: 20050630, end: 20050827
  6. LISINOPRIL [Concomitant]
     Dates: start: 20050616
  7. COLACE [Concomitant]
     Dates: start: 20050624
  8. SENOKOT [Concomitant]
     Dates: start: 20050624

REACTIONS (3)
  - BACK PAIN [None]
  - CEREBRAL HAEMORRHAGE [None]
  - DYSPNOEA [None]
